FAERS Safety Report 7248982-7 (Version None)
Quarter: 2011Q1

REPORT INFORMATION
  Report Type: 
  Country: None (occurrence: None)
  Receive Date: 20110128
  Receipt Date: 20101014
  Transmission Date: 20110831
  Serious: Yes (Hospitalization)
  Sender: FDA-Public Use
  Company Number: US-BAYER-201023041NA

PATIENT
  Sex: Female
  Weight: 104.31 kg

DRUGS (4)
  1. YASMIN [Suspect]
     Indication: ORAL CONTRACEPTION
     Dosage: UNK UNK, QD
     Route: 048
     Dates: start: 20021201, end: 20030301
  2. DIOVAN HCT [Concomitant]
     Dosage: UNK
     Dates: start: 20040101
  3. YASMIN [Suspect]
     Indication: MENSTRUATION IRREGULAR
  4. TORADOL [Concomitant]
     Dosage: UNK
     Dates: start: 20030307

REACTIONS (3)
  - DEEP VEIN THROMBOSIS [None]
  - OEDEMA PERIPHERAL [None]
  - MUSCLE SPASMS [None]
